FAERS Safety Report 4721489-4 (Version None)
Quarter: 2005Q3

REPORT INFORMATION
  Report Type: 
  Country: None (occurrence: None)
  Receive Date: 20050721
  Receipt Date: 20041013
  Transmission Date: 20060218
  Serious: No
  Sender: FDA-Public Use
  Company Number: US-BRISTOL-MYERS SQUIBB COMPANY-12730925

PATIENT
  Age: 43 Year
  Sex: Female
  Weight: 105 kg

DRUGS (2)
  1. COUMADIN [Suspect]
     Indication: THROMBOSIS
     Dosage: START WITH VARYING DOSE;CURRENTLY ON 5MG,1 TAB QD X 6 DAYS + 5MG, 1 + 1/2 TABS (7.5MG) ON SATURDAYS
     Route: 048
     Dates: start: 20040601
  2. TOPROL-XL [Concomitant]

REACTIONS (1)
  - ALOPECIA [None]
